FAERS Safety Report 4805440-4 (Version None)
Quarter: 2005Q4

REPORT INFORMATION
  Report Type: 
  Country: None (occurrence: None)
  Receive Date: 20051018
  Receipt Date: 20051006
  Transmission Date: 20060501
  Serious: Yes (Hospitalization, Other)
  Sender: FDA-Public Use
  Company Number: 2005075603

PATIENT
  Age: 75 Year
  Sex: Male

DRUGS (9)
  1. CARDURA XL [Suspect]
     Indication: HYPERTENSION
     Dosage: (DAILY INTERVAL:  EVERY DAY),  ORAL
     Route: 048
     Dates: start: 20050331
  2. CARDURA [Suspect]
     Indication: HYPERTENSION
     Dosage: 4 MG (DAILY), ORAL
     Route: 048
  3. PREDNISONE [Concomitant]
  4. ALENDRONATE SODIUM [Concomitant]
  5. CABERGOLINE [Concomitant]
  6. CO-CARELDOPA (CARBIDOPA, LEVODOPA) [Concomitant]
  7. DUTASTERIDE (DUTASTERIDE) [Concomitant]
  8. ENALAPRIL MALEATE [Concomitant]
  9. PHYLLOCONTIN [Concomitant]

REACTIONS (3)
  - GENERAL PHYSICAL HEALTH DETERIORATION [None]
  - PEMPHIGOID [None]
  - PHARMACEUTICAL PRODUCT COMPLAINT [None]
